FAERS Safety Report 5488203-9 (Version None)
Quarter: 2007Q4

REPORT INFORMATION
  Report Type: 
  Country: None (occurrence: None)
  Receive Date: 20071017
  Receipt Date: 20071005
  Transmission Date: 20080405
  Serious: Yes (Other)
  Sender: FDA-Public Use
  Company Number: BE-BAYER-200715924GDS

PATIENT
  Sex: Male

DRUGS (2)
  1. CIPROFLOXACIN [Suspect]
     Indication: LIVER ABSCESS
     Route: 042
     Dates: start: 20070101
  2. MEROPENEM [Concomitant]
     Indication: LIVER ABSCESS
     Route: 042
     Dates: start: 20070101, end: 20070101

REACTIONS (4)
  - ARTHRALGIA [None]
  - JOINT SWELLING [None]
  - NEONATAL DISORDER [None]
  - PLATELET COUNT INCREASED [None]
